FAERS Safety Report 12741208 (Version 1)
Quarter: 2016Q3

REPORT INFORMATION
  Report Type: Report from Study
  Country: US (occurrence: US)
  Receive Date: 20160914
  Receipt Date: 20160914
  Transmission Date: 20161109
  Serious: Yes (Hospitalization, Other)
  Sender: FDA-Public Use
  Company Number: US-ROCHE-1415898

PATIENT
  Age: 47 Year
  Sex: Male
  Weight: 114 kg

DRUGS (3)
  1. TEMSIROLIMUS [Suspect]
     Active Substance: TEMSIROLIMUS
     Indication: PANCREATIC NEOPLASM
     Dosage: ON DAYS 1,8, 15, 22.?LAST DOSE ADMINISTERED ON 25/FEB/2010
     Route: 042
     Dates: start: 20100126, end: 20140403
  2. OCTREOTIDE. [Concomitant]
     Active Substance: OCTREOTIDE
     Route: 065
     Dates: start: 200708
  3. BEVACIZUMAB [Suspect]
     Active Substance: BEVACIZUMAB
     Indication: PANCREATIC NEOPLASM
     Dosage: OVER 30-90 MIN ON DAYS 1 AND 15?LAST DOSE ADMINISTERED ON 25/FEB/2010
     Route: 042
     Dates: start: 20100126

REACTIONS (7)
  - Anaemia [Recovered/Resolved]
  - Oesophageal varices haemorrhage [Recovered/Resolved]
  - Hyponatraemia [Unknown]
  - Platelet count decreased [Unknown]
  - Stomatitis [Unknown]
  - Upper gastrointestinal haemorrhage [Unknown]
  - Lymphocyte count decreased [Unknown]

NARRATIVE: CASE EVENT DATE: 20100303
